FAERS Safety Report 7552050-4 (Version None)
Quarter: 2011Q2

REPORT INFORMATION
  Report Type: 
  Country: None (occurrence: None)
  Receive Date: 20110616
  Receipt Date: 20110613
  Transmission Date: 20111010
  Serious: Yes (Death)
  Sender: FDA-Public Use
  Company Number: US-PFIZER INC-2011093219

PATIENT
  Age: 54 Year
  Sex: Male
  Weight: 126.98 kg

DRUGS (4)
  1. ALPRAZOLAM [Suspect]
     Dosage: UNK
  2. TRAMADOL HCL [Suspect]
     Dosage: UNK
  3. OXYCODONE HCL [Suspect]
     Dosage: UNK
  4. CAFFEINE [Suspect]
     Dosage: UNK

REACTIONS (2)
  - HOMICIDE [None]
  - GUN SHOT WOUND [None]
